FAERS Safety Report 6266126-5 (Version None)
Quarter: 2009Q3

REPORT INFORMATION
  Report Type: 
  Country: None (occurrence: None)
  Receive Date: 20090713
  Receipt Date: 20090708
  Transmission Date: 20100115
  Serious: Yes (Hospitalization)
  Sender: FDA-Public Use
  Company Number: FR-BRISTOL-MYERS SQUIBB COMPANY-14696249

PATIENT
  Age: 66 Year
  Sex: Male

DRUGS (9)
  1. ELISOR TABS 20 MG [Suspect]
  2. ZINNAT [Suspect]
     Indication: SINUSITIS
     Dates: start: 20090610, end: 20090614
  3. IMODIUM [Suspect]
     Indication: DIARRHOEA
     Dosage: FORM:CAPSULES;TOOK 2 CAPSULES ON 13JUN09 AND 1 CAPSULE ON 14JUN09.
     Dates: start: 20090613, end: 20090614
  4. DILTIAZEM HCL [Suspect]
     Dosage: BI-TILDIEM LP
  5. COVERSYL [Suspect]
  6. KARDEGIC [Suspect]
  7. TRANXENE [Suspect]
  8. DOLIPRANE [Suspect]
  9. ZOLPIDEM TARTRATE [Suspect]

REACTIONS (1)
  - COLITIS ISCHAEMIC [None]
